FAERS Safety Report 7968603-5 (Version None)
Quarter: 2011Q4

REPORT INFORMATION
  Report Type: 
  Country: None (occurrence: None)
  Receive Date: 20111209
  Receipt Date: 20111207
  Transmission Date: 20120403
  Serious: Yes (Other)
  Sender: FDA-Public Use
  Company Number: US-BAYER-2011-008234

PATIENT
  Age: 55 Year
  Sex: Male

DRUGS (3)
  1. BETASERON [Suspect]
     Dosage: 8 MIU, QOD
     Route: 058
     Dates: start: 20111115
  2. LISINOPRIL [Concomitant]
     Dosage: 2.5 MG, UNK
     Route: 048
  3. BETASERON [Suspect]
     Indication: MULTIPLE SCLEROSIS
     Dosage: 3 MG, QOD
     Route: 058
     Dates: start: 20090610, end: 20111104

REACTIONS (5)
  - HERNIA REPAIR [None]
  - BLINDNESS [None]
  - RASH PAPULAR [None]
  - INJECTION SITE PAIN [None]
  - SECRETION DISCHARGE [None]
